FAERS Safety Report 17905788 (Version 3)
Quarter: 2020Q4

REPORT INFORMATION
  Report Type: Report from Study
  Country: None (occurrence: US)
  Receive Date: 20200617
  Receipt Date: 20201119
  Transmission Date: 20210113
  Serious: Yes (Hospitalization, Other)
  Sender: FDA-Public Use
  Company Number: US-INSMED, INC.-US-INS-20-00843

PATIENT
  Age: 68 Year
  Sex: Female

DRUGS (2)
  1. ARIKAYCE [Suspect]
     Active Substance: AMIKACIN
     Indication: BRONCHIECTASIS
  2. ARIKAYCE [Suspect]
     Active Substance: AMIKACIN
     Indication: SARCOIDOSIS
     Route: 055
     Dates: start: 2020, end: 2020

REACTIONS (10)
  - Cardiac disorder [Unknown]
  - Insomnia [Unknown]
  - Off label use [Unknown]
  - Dyspnoea [Unknown]
  - Feeling abnormal [Unknown]
  - Adverse drug reaction [Unknown]
  - Asthenia [Unknown]
  - Fatigue [Unknown]
  - Hospitalisation [Unknown]
  - Therapy interrupted [Unknown]

NARRATIVE: CASE EVENT DATE: 2020
